FAERS Safety Report 8375509-9 (Version None)
Quarter: 2012Q1

REPORT INFORMATION
  Report Type: 
  Country: None (occurrence: None)
  Receive Date: 20120323
  Receipt Date: 20110414
  Transmission Date: 20120608
  Serious: Yes (Other)
  Sender: FDA-Public Use
  Company Number: 163-21880-11030310

PATIENT
  Age: 79 Year
  Sex: Female

DRUGS (3)
  1. REVLIMID [Suspect]
     Indication: MULTIPLE MYELOMA
     Dosage: 10 MG, DAILY X 21 DAYS, PO 15 MG, DAILY X 7 DAYS, PO
     Route: 048
     Dates: start: 20101123
  2. REVLIMID [Suspect]
     Indication: MULTIPLE MYELOMA
     Dosage: 10 MG, DAILY X 21 DAYS, PO 15 MG, DAILY X 7 DAYS, PO
     Route: 048
     Dates: start: 20080826, end: 20090110
  3. REVLIMID [Suspect]

REACTIONS (8)
  - URINE ODOUR ABNORMAL [None]
  - POLLAKIURIA [None]
  - OEDEMA PERIPHERAL [None]
  - HYPOAESTHESIA [None]
  - URINARY TRACT INFECTION [None]
  - FATIGUE [None]
  - DIARRHOEA [None]
  - THROMBOSIS [None]
